FAERS Safety Report 18989949 (Version 2)
Quarter: 2021Q2

REPORT INFORMATION
  Report Type: Other
  Country: US (occurrence: US)
  Receive Date: 20210310
  Receipt Date: 20210503
  Transmission Date: 20210717
  Serious: Yes (Hospitalization)
  Sender: FDA-Public Use
  Company Number: US-NEUROCRINE BIOSCIENCES INC.-2021NBI00952

PATIENT

DRUGS (7)
  1. INGREZZA [Suspect]
     Active Substance: VALBENAZINE
     Indication: TARDIVE DYSKINESIA
     Dosage: 80 MILLIGRAM QD
     Route: 048
     Dates: start: 20170909
  2. XANAX [Concomitant]
     Active Substance: ALPRAZOLAM
     Indication: ANXIETY
     Dosage: 0.5 MILLIGRAM
     Route: 048
     Dates: start: 2016
  3. INGREZZA [Suspect]
     Active Substance: VALBENAZINE
     Dosage: 40 MILLIGRAM QD
     Route: 048
     Dates: start: 20170901, end: 20170908
  4. WELLBUTRIN [Concomitant]
     Active Substance: BUPROPION HYDROCHLORIDE
     Indication: DEPRESSION
     Dosage: 300 MILLIGRAM
     Route: 048
     Dates: start: 2020
  5. TRINTELLIX [Concomitant]
     Active Substance: VORTIOXETINE HYDROBROMIDE
     Indication: DEPRESSION
     Dosage: UNK
     Route: 048
     Dates: start: 2020
  6. LATUDA [Concomitant]
     Active Substance: LURASIDONE HYDROCHLORIDE
     Dosage: UNK, TID
  7. RITALIN [Concomitant]
     Active Substance: METHYLPHENIDATE HYDROCHLORIDE
     Indication: ATTENTION DEFICIT HYPERACTIVITY DISORDER
     Dosage: UNK UNK, BID
     Route: 048
     Dates: start: 2016

REACTIONS (8)
  - Weight decreased [Recovering/Resolving]
  - Prescribed overdose [Unknown]
  - Decreased appetite [Recovering/Resolving]
  - Depression [Recovering/Resolving]
  - Dizziness [Unknown]
  - Syncope [Recovered/Resolved]
  - Nausea [Recovering/Resolving]
  - Malaise [Recovering/Resolving]

NARRATIVE: CASE EVENT DATE: 2020
